FAERS Safety Report 15614291 (Version 6)
Quarter: 2020Q1

REPORT INFORMATION
  Report Type: Spontaneous
  Country: JP (occurrence: JP)
  Receive Date: 20181113
  Receipt Date: 20200116
  Transmission Date: 20200409
  Serious: Yes (Hospitalization, Other)
  Sender: FDA-Public Use
  Company Number: JP-SEATTLE GENETICS-2018SGN02862

PATIENT
  Age: 75 Year
  Sex: Male
  Weight: 54.9 kg

DRUGS (6)
  1. DOXORUBICIN HYDROCHLORIDE. [Concomitant]
     Active Substance: DOXORUBICIN HYDROCHLORIDE
     Indication: HODGKIN^S DISEASE MIXED CELLULARITY STAGE UNSPECIFIED
     Dosage: 42 MILLIGRAM
     Route: 041
     Dates: start: 20181026, end: 20181026
  2. ADCETRIS [Suspect]
     Active Substance: BRENTUXIMAB VEDOTIN
     Indication: HODGKIN^S DISEASE MIXED CELLULARITY STAGE UNSPECIFIED
     Dosage: 75 MILLIGRAM, Q2WEEKS
     Route: 041
     Dates: start: 20181026, end: 20181026
  3. VINBLASTINE SULFATE. [Concomitant]
     Active Substance: VINBLASTINE SULFATE
     Indication: HODGKIN^S DISEASE MIXED CELLULARITY STAGE UNSPECIFIED
     Dosage: 10 MILLIGRAM
     Route: 041
     Dates: start: 20181026, end: 20181026
  4. DACARBAZINE. [Concomitant]
     Active Substance: DACARBAZINE
     Indication: HODGKIN^S DISEASE MIXED CELLULARITY STAGE UNSPECIFIED
     Dosage: 630 MILLIGRAM
     Route: 041
     Dates: start: 20181026, end: 20181026
  5. FILGRASTIM [Suspect]
     Active Substance: FILGRASTIM
     Indication: NEUTROPHIL COUNT DECREASED
     Dosage: 75 MICROGRAM, QD
     Route: 058
     Dates: start: 20181101, end: 20181106
  6. GRANISETRON HYDROCHLORIDE. [Concomitant]
     Active Substance: GRANISETRON HYDROCHLORIDE
     Indication: PROPHYLAXIS OF NAUSEA AND VOMITING
     Dosage: 3 MILLIGRAM, QD
     Route: 041
     Dates: start: 20181026, end: 20181026

REACTIONS (8)
  - Diarrhoea [Unknown]
  - Eczema [Unknown]
  - Chest discomfort [Recovering/Resolving]
  - Malaise [Recovered/Resolved]
  - Febrile neutropenia [Recovered/Resolved]
  - Decreased appetite [Unknown]
  - Nausea [Unknown]
  - Interstitial lung disease [Recovered/Resolved]

NARRATIVE: CASE EVENT DATE: 20181027
